FAERS Safety Report 13179200 (Version 14)
Quarter: 2019Q3

REPORT INFORMATION
  Report Type: Report from Study
  Country: DE (occurrence: DE)
  Receive Date: 20170202
  Receipt Date: 20190806
  Transmission Date: 20191004
  Serious: Yes (Hospitalization, Other)
  Sender: FDA-Public Use
  Company Number: PHHY2016DE180620

PATIENT
  Age: 74 Year
  Sex: Male
  Weight: 80 kg

DRUGS (33)
  1. VOTRIENT [Suspect]
     Active Substance: PAZOPANIB HYDROCHLORIDE
     Dosage: 200 MG, QD
     Route: 048
     Dates: start: 20190119
  2. HYDROCORTISON [Concomitant]
     Active Substance: HYDROCORTISONE
     Indication: ADDISON^S DISEASE
     Dosage: 6.8 MG, TID
     Route: 048
     Dates: start: 20161123, end: 20161223
  3. HYDROCORTISON [Concomitant]
     Active Substance: HYDROCORTISONE
     Indication: PROPHYLAXIS
     Dosage: 8.3 MG, TID
     Route: 048
     Dates: start: 20161224, end: 20170207
  4. HYDROCORTISON [Concomitant]
     Active Substance: HYDROCORTISONE
     Dosage: 10 MG, BID
     Route: 048
     Dates: start: 20170424
  5. VOTRIENT [Suspect]
     Active Substance: PAZOPANIB HYDROCHLORIDE
     Dosage: 400 MG, QD
     Route: 048
     Dates: start: 20161228, end: 20170118
  6. MARCOUMAR [Concomitant]
     Active Substance: PHENPROCOUMON
     Indication: PULMONARY EMBOLISM
     Dosage: 1.5 MG, QD
     Route: 048
     Dates: start: 20160922
  7. L THYROXIN BETA [Concomitant]
     Dosage: 75 UG, QD
     Route: 048
     Dates: start: 20160922, end: 20161122
  8. XARELTO [Concomitant]
     Active Substance: RIVAROXABAN
     Indication: PULMONARY EMBOLISM
     Dosage: 10 MG, QD
     Route: 048
     Dates: start: 20060102, end: 20160921
  9. L THYROXIN HENNING [Concomitant]
     Active Substance: LEVOTHYROXINE SODIUM
     Indication: ADRENAL INSUFFICIENCY
     Dosage: 100 UG, QD
     Route: 048
     Dates: start: 20161123
  10. L THYROXIN BETA [Concomitant]
     Indication: SECONDARY HYPOTHYROIDISM
     Dosage: 50 UG, QD
     Route: 048
     Dates: start: 20160826, end: 20161021
  11. DOXAZOSIN-RATIOPHARM [Concomitant]
     Indication: BENIGN PROSTATIC HYPERPLASIA
     Dosage: 2 MG, QD
     Route: 048
     Dates: start: 20160102
  12. FLUDROCORTISONE [Concomitant]
     Active Substance: FLUDROCORTISONE
     Indication: ADDISON^S DISEASE
     Dosage: 0.07 MG, QD
     Route: 048
     Dates: start: 20160922, end: 20161122
  13. VOTRIENT [Suspect]
     Active Substance: PAZOPANIB HYDROCHLORIDE
     Dosage: 400 MG, QD
     Route: 048
     Dates: start: 20161116, end: 20161222
  14. VOTRIENT [Suspect]
     Active Substance: PAZOPANIB HYDROCHLORIDE
     Dosage: 400 MG, QD
     Route: 048
     Dates: start: 20170121, end: 20170719
  15. VOTRIENT [Suspect]
     Active Substance: PAZOPANIB HYDROCHLORIDE
     Dosage: 200 MG, QD
     Route: 048
     Dates: start: 20171130, end: 20180716
  16. HCT-BETA [Concomitant]
     Indication: HYPERTENSION
     Dosage: 12.5 MG, QD
     Route: 048
     Dates: start: 20060102
  17. TORASEMID RATIOPHARM [Concomitant]
     Indication: HYPERTENSION
     Dosage: 3.25 MG, BID
     Route: 048
     Dates: start: 20160922
  18. VOTRIENT [Suspect]
     Active Substance: PAZOPANIB HYDROCHLORIDE
     Dosage: 400 MG, QD
     Route: 048
     Dates: start: 20170720, end: 20171018
  19. LERCANIDIPINE [Concomitant]
     Active Substance: LERCANIDIPINE
     Indication: HYPERTENSION
     Dosage: 20 MG, QD
     Route: 048
     Dates: start: 20160826
  20. TELMISARTAN. [Concomitant]
     Active Substance: TELMISARTAN
     Indication: HYPERTENSION
     Dosage: 80 MG, QD
     Route: 048
     Dates: start: 20060102
  21. VOTRIENT [Suspect]
     Active Substance: PAZOPANIB HYDROCHLORIDE
     Indication: METASTATIC RENAL CELL CARCINOMA
     Dosage: 800 MG, QD
     Route: 048
     Dates: start: 20160721, end: 20161115
  22. KALINOR [Concomitant]
     Indication: PROPHYLAXIS
     Dosage: 1.56 G, QD
     Route: 048
     Dates: start: 20160826, end: 20161122
  23. HYDROCORTISON [Concomitant]
     Active Substance: HYDROCORTISONE
     Dosage: 6.8 MG, TID
     Route: 048
     Dates: start: 20161123, end: 20161223
  24. VOTRIENT [Suspect]
     Active Substance: PAZOPANIB HYDROCHLORIDE
     Dosage: 400 MG, QD
     Route: 048
     Dates: start: 20171019, end: 20171129
  25. PANTOZAL [Concomitant]
     Indication: PROPHYLAXIS
     Dosage: 20 MG, QD
     Route: 048
     Dates: start: 19960108, end: 20161122
  26. FLUDROCORTISONE [Concomitant]
     Active Substance: FLUDROCORTISONE
     Dosage: 0.75 MG, QD
     Route: 048
     Dates: start: 20161123
  27. HYDROCORTISON [Concomitant]
     Active Substance: HYDROCORTISONE
     Dosage: 5 MG, BID
     Route: 048
     Dates: start: 20170208, end: 20170423
  28. HYDROCORTISON [Concomitant]
     Active Substance: HYDROCORTISONE
     Dosage: 8.3 MG, TID
     Route: 048
     Dates: start: 20161224, end: 20170207
  29. SIMVABETA [Concomitant]
     Active Substance: SIMVASTATIN
     Indication: HYPERTENSION
     Dosage: 10 MG, QD
     Route: 048
     Dates: start: 20060102, end: 20161122
  30. METOPROLOL RATIOPHARM [Concomitant]
     Active Substance: METOPROLOL
     Indication: HYPERTENSION
     Dosage: 95 MG, BID
     Route: 048
     Dates: start: 20060102
  31. MOXONIDIN RATIOPHARM [Concomitant]
     Indication: HYPERTENSION
     Dosage: 0.2 MG, QD
     Route: 048
     Dates: start: 20160922
  32. HYDROCORTISON ACIS [Concomitant]
     Indication: ADDISON^S DISEASE
     Dosage: 8 MG, TID
     Route: 048
     Dates: start: 20160922, end: 20161122
  33. HYDROCORTISON [Concomitant]
     Active Substance: HYDROCORTISONE
     Dosage: DAILY DOSE: 10 MG MILLIGRAM(S) EVERY DAY
     Route: 048
     Dates: start: 20170208, end: 20170423

REACTIONS (15)
  - Platelet count decreased [Unknown]
  - Blood bilirubin increased [Unknown]
  - Gastroenteritis [Recovered/Resolved]
  - International normalised ratio increased [Unknown]
  - Diarrhoea [Recovered/Resolved]
  - Blood creatinine increased [Unknown]
  - Glomerular filtration rate decreased [Unknown]
  - Dehydration [Recovered/Resolved]
  - Thrombotic microangiopathy [Recovered/Resolved]
  - Blood thyroid stimulating hormone increased [Unknown]
  - Monocyte percentage increased [Unknown]
  - Blood calcium increased [Unknown]
  - C-reactive protein increased [Unknown]
  - Blood lactate dehydrogenase increased [Unknown]
  - Aspartate aminotransferase increased [Unknown]

NARRATIVE: CASE EVENT DATE: 20161222
